FAERS Safety Report 11288036 (Version 1)
Quarter: 2015Q3

REPORT INFORMATION
  Report Type: Spontaneous
  Country: TR (occurrence: TR)
  Receive Date: 20150721
  Receipt Date: 20150721
  Transmission Date: 20151125
  Serious: Yes (Hospitalization)
  Sender: FDA-Public Use
  Company Number: TR-TEVA-577963ISR

PATIENT
  Sex: Female
  Weight: 82 kg

DRUGS (2)
  1. METHOTREXATE (METHOTREXATE SODIUM) [Suspect]
     Active Substance: METHOTREXATE SODIUM
     Indication: RHEUMATOID ARTHRITIS
     Route: 048
     Dates: start: 20130205, end: 20150622
  2. REMICADE [Suspect]
     Active Substance: INFLIXIMAB
     Dosage: 100 MG/FLACON; 300 MG I.V.
     Route: 042
     Dates: start: 20150525, end: 20150622

REACTIONS (3)
  - Pleurisy [Recovering/Resolving]
  - Pneumonia [Recovering/Resolving]
  - Chest pain [Recovering/Resolving]
